FAERS Safety Report 18013873 (Version 2)
Quarter: 2020Q3

REPORT INFORMATION
  Report Type: Report from Study
  Country: AU (occurrence: AU)
  Receive Date: 20200713
  Receipt Date: 20200720
  Transmission Date: 20201103
  Serious: Yes (Death, Other)
  Sender: FDA-Public Use
  Company Number: AU-VIIV HEALTHCARE LIMITED-AU2020GSK127946

PATIENT
  Age: 45 Year
  Sex: Male
  Weight: 40 kg

DRUGS (1)
  1. FOSTEMSAVIR [Suspect]
     Active Substance: FOSTEMSAVIR
     Indication: HIV INFECTION

REACTIONS (2)
  - Kaposi^s sarcoma [Fatal]
  - Acquired immunodeficiency syndrome [Fatal]

NARRATIVE: CASE EVENT DATE: 20200709
